FAERS Safety Report 4564022-2 (Version None)
Quarter: 2005Q1

REPORT INFORMATION
  Report Type: 
  Country: None (occurrence: None)
  Receive Date: 20050126
  Receipt Date: 20050119
  Transmission Date: 20050727
  Serious: Yes (Other)
  Sender: FDA-Public Use
  Company Number: 2005-01-1140

PATIENT
  Sex: Male

DRUGS (3)
  1. CLARINEX [Suspect]
     Dosage: 1 TAB QD ORAL
     Route: 048
     Dates: start: 20041201, end: 20050118
  2. BI-TILDIEM (DILTIAZEM HCL) [Concomitant]
  3. ALDACTAZINE [Concomitant]

REACTIONS (3)
  - BLOOD PRESSURE SYSTOLIC INCREASED [None]
  - CATARACT OPERATION [None]
  - WHEEZING [None]
